FAERS Safety Report 4322573-X (Version None)
Quarter: 2004Q1

REPORT INFORMATION
  Report Type: 
  Country: None (occurrence: None)
  Receive Date: 20040322
  Receipt Date: 20040128
  Transmission Date: 20041129
  Serious: Yes (Hospitalization)
  Sender: FDA-Public Use
  Company Number: NSADSS2003022426

PATIENT
  Age: 44 Year
  Sex: Female

DRUGS (2)
  1. ORTHO TRI-CYCLEN LO [Suspect]
     Indication: DYSFUNCTIONAL UTERINE BLEEDING
     Dosage: 1 DOSE(S), 1 IN 1 DAY, ORAL; 2 DOSE(S), 1 IN 1 DAY, ORAL
     Route: 048
     Dates: start: 20030401
  2. ORTHO TRI-CYCLEN LO [Suspect]
     Indication: DYSFUNCTIONAL UTERINE BLEEDING
     Dosage: 1 DOSE(S), 1 IN 1 DAY, ORAL; 2 DOSE(S), 1 IN 1 DAY, ORAL
     Route: 048
     Dates: start: 20030501

REACTIONS (2)
  - DEEP VEIN THROMBOSIS [None]
  - METRORRHAGIA [None]
